FAERS Safety Report 6428506-4 (Version None)
Quarter: 2009Q4

REPORT INFORMATION
  Report Type: 
  Country: None (occurrence: None)
  Receive Date: 20091102
  Receipt Date: 20091021
  Transmission Date: 20100525
  Serious: Yes (Other)
  Sender: FDA-Public Use
  Company Number: FABR-1000904

PATIENT
  Age: 47 Year
  Sex: Male

DRUGS (8)
  1. FABRAZYME [Suspect]
     Indication: FABRY'S DISEASE
     Dosage: 70 MG, Q2W, INTRAVENOUS
     Route: 042
     Dates: start: 20030627
  2. SOLUPRED (PREDNISOLONE SODIUM SULFOBENZOATE) [Concomitant]
  3. CELLCEPT [Concomitant]
  4. PROGRAF [Concomitant]
  5. ATORVASTATIN CALCIUM [Concomitant]
  6. TEGRETOL [Concomitant]
  7. LASIX [Concomitant]
  8. PRAZOSIN HCL [Concomitant]

REACTIONS (8)
  - BLOOD IMMUNOGLOBULIN G INCREASED [None]
  - CHILLS [None]
  - COMPLICATIONS OF TRANSPLANTED KIDNEY [None]
  - HAEMODIALYSIS [None]
  - HYPERTHERMIA [None]
  - INFUSION RELATED REACTION [None]
  - RENAL IMPAIRMENT [None]
  - RENAL TRANSPLANT [None]
